FAERS Safety Report 9331996 (Version 1)
Quarter: 2013Q2

REPORT INFORMATION
  Report Type: Spontaneous
  Country: GB (occurrence: GB)
  Receive Date: 20130605
  Receipt Date: 20130605
  Transmission Date: 20140414
  Serious: Yes (Other)
  Sender: FDA-Public Use
  Company Number: GB-009507513-1305GBR017874

PATIENT
  Sex: Female

DRUGS (1)
  1. ELOCON [Suspect]
     Indication: ECZEMA

REACTIONS (3)
  - Abortion spontaneous [Unknown]
  - Stillbirth [Unknown]
  - Exposure during pregnancy [Recovered/Resolved]
